FAERS Safety Report 13996606 (Version 1)
Quarter: 2017Q3

REPORT INFORMATION
  Report Type: Spontaneous
  Country: US (occurrence: US)
  Receive Date: 20170921
  Receipt Date: 20170921
  Transmission Date: 20171128
  Serious: No
  Sender: FDA-Public Use
  Company Number: US-ALLERGAN-1724575US

PATIENT
  Age: 81 Year
  Sex: Female

DRUGS (1)
  1. VIBERZI [Suspect]
     Active Substance: ELUXADOLINE
     Indication: DIARRHOEA
     Dosage: 100 MG, BID
     Route: 048
     Dates: start: 201705, end: 20170602

REACTIONS (8)
  - Eructation [Unknown]
  - Muscle spasms [Unknown]
  - Abdominal pain [Unknown]
  - Flatulence [Unknown]
  - Drug dose omission [Unknown]
  - Diarrhoea [Unknown]
  - Bowel movement irregularity [Unknown]
  - Dry throat [Unknown]

NARRATIVE: CASE EVENT DATE: 20170606
